FAERS Safety Report 23361343 (Version 1)
Quarter: 2024Q1

REPORT INFORMATION
  Report Type: Report from Study
  Country: US (occurrence: US)
  Receive Date: 20240103
  Receipt Date: 20240103
  Transmission Date: 20240410
  Serious: Yes (Death)
  Sender: FDA-Public Use
  Company Number: US-BAYER-2024A000808

PATIENT
  Age: 80 Year
  Sex: Female
  Weight: 63.039 kg

DRUGS (1)
  1. ADEMPAS [Suspect]
     Active Substance: RIOCIGUAT
     Indication: Pulmonary hypertension
     Dosage: 0.5 MG, TID
     Route: 048
     Dates: start: 202308

REACTIONS (1)
  - Death [Fatal]

NARRATIVE: CASE EVENT DATE: 20231225
